FAERS Safety Report 11879411 (Version 1)
Quarter: 2015Q4

REPORT INFORMATION
  Report Type: Spontaneous
  Country: DK (occurrence: DE)
  Receive Date: 20151230
  Receipt Date: 20151230
  Transmission Date: 20160305
  Serious: Yes (Congenital Anomaly)
  Sender: FDA-Public Use
  Company Number: DE-FRI-1000081903

PATIENT
  Sex: Male
  Weight: 3.82 kg

DRUGS (4)
  1. ACTRAPID [Concomitant]
     Active Substance: INSULIN HUMAN
     Indication: PRODUCT USED FOR UNKNOWN INDICATION
     Dosage: UNKNOWN
     Route: 064
  2. L-THYROXIN (LEVOTHYROXINE SODIUM) [Concomitant]
     Indication: HYPOTHYROIDISM
     Dosage: UNKNOWN
     Route: 064
  3. SAROTEN DRAGEES [Suspect]
     Active Substance: AMITRIPTYLINE HYDROCHLORIDE
     Indication: DEPRESSION
     Dosage: 75 MG
     Route: 064
     Dates: start: 20141023, end: 20150715
  4. CITALOPRAM [Suspect]
     Active Substance: CITALOPRAM HYDROBROMIDE
     Indication: DEPRESSION
     Dosage: 20 MG
     Route: 064
     Dates: start: 20141023, end: 20150715

REACTIONS (2)
  - Congenital central nervous system anomaly [Not Recovered/Not Resolved]
  - Foetal exposure during pregnancy [Unknown]
